FAERS Safety Report 10241679 (Version 2)
Quarter: 2014Q2

REPORT INFORMATION
  Report Type: Spontaneous
  Country: JP (occurrence: JP)
  Receive Date: 20140617
  Receipt Date: 20140625
  Transmission Date: 20141212
  Serious: No
  Sender: FDA-Public Use
  Company Number: JP-PFIZER INC-2014160158

PATIENT
  Sex: Male

DRUGS (1)
  1. DOXAZOSIN MESILATE [Suspect]
     Dosage: UNK
     Route: 048

REACTIONS (1)
  - Rhinorrhoea [Unknown]
